FAERS Safety Report 6214990-8 (Version None)
Quarter: 2009Q2

REPORT INFORMATION
  Report Type: 
  Country: None (occurrence: None)
  Receive Date: 20090604
  Receipt Date: 20080513
  Transmission Date: 20091009
  Serious: No
  Sender: FDA-Public Use
  Company Number: US-ASTRAZENECA-2008UW09907

PATIENT
  Age: 59 Year
  Sex: Female

DRUGS (7)
  1. PRILOSEC [Suspect]
     Indication: GASTROOESOPHAGEAL REFLUX DISEASE
     Route: 048
  2. XANAX [Concomitant]
  3. LEXAPRO [Concomitant]
  4. METFORMIN HYDROCHLORIDE [Concomitant]
  5. AMITZA [Concomitant]
  6. BELLADONNA [Concomitant]
  7. DETROL [Concomitant]

REACTIONS (3)
  - COUGH [None]
  - SENSATION OF FOREIGN BODY [None]
  - THROAT IRRITATION [None]
